FAERS Safety Report 5588076-X (Version None)
Quarter: 2008Q1

REPORT INFORMATION
  Report Type: 
  Country: None (occurrence: None)
  Receive Date: 20080111
  Receipt Date: 20080102
  Transmission Date: 20080703
  Serious: Yes (Life-Threatening)
  Sender: FDA-Public Use
  Company Number: AU-PURDUE-USA_2008_0030951

PATIENT
  Age: 58 Year
  Sex: Female

DRUGS (10)
  1. OXYCONTIN [Suspect]
     Indication: PAIN
     Dosage: 20 MG, UNK
     Route: 048
     Dates: start: 20060501, end: 20070808
  2. OXYIR [Suspect]
     Indication: PAIN
     Dosage: 30 MG, UNK
     Route: 048
     Dates: start: 20060501, end: 20070808
  3. ACETAMINOPHEN W/ CODEINE [Concomitant]
  4. PROTHIADEN [Concomitant]
  5. ZOLOFT [Concomitant]
  6. PREMARIN [Concomitant]
  7. ASASANTIN - SLOW RELEASE [Concomitant]
  8. LIPITOR [Concomitant]
  9. METOPROLOL SUCCINATE [Concomitant]
  10. LEVOTHYROXINE SODIUM [Concomitant]

REACTIONS (4)
  - EYELID OEDEMA [None]
  - FACE OEDEMA [None]
  - OEDEMA MOUTH [None]
  - THROAT TIGHTNESS [None]
